FAERS Safety Report 4772977-6 (Version None)
Quarter: 2005Q3

REPORT INFORMATION
  Report Type: 
  Country: None (occurrence: None)
  Receive Date: 20050916
  Receipt Date: 20050825
  Transmission Date: 20060218
  Serious: Yes (Hospitalization)
  Sender: FDA-Public Use
  Company Number: DE_050515941

PATIENT
  Age: 23 Year
  Sex: Female

DRUGS (1)
  1. CYMBALTA [Suspect]
     Indication: DEPRESSION
     Dosage: 30 MG DAY
     Dates: start: 20050427, end: 20050503

REACTIONS (7)
  - AGITATION [None]
  - ANXIETY [None]
  - BLOOD CHLORIDE INCREASED [None]
  - CONDITION AGGRAVATED [None]
  - DEPRESSION [None]
  - STRESS [None]
  - SUICIDAL IDEATION [None]
